FAERS Safety Report 19778228 (Version 1)
Quarter: 2021Q3

REPORT INFORMATION
  Report Type: Spontaneous
  Country: US (occurrence: US)
  Receive Date: 20210831
  Receipt Date: 20210831
  Transmission Date: 20211014
  Serious: Yes (Hospitalization)
  Sender: FDA-Public Use
  Company Number: None

PATIENT
  Age: 74 Year
  Sex: Female

DRUGS (22)
  1. BIOTENE DRY MOUTH [Concomitant]
  2. METFORMIN [Concomitant]
     Active Substance: METFORMIN HYDROCHLORIDE
  3. ONDANSETRON [Concomitant]
     Active Substance: ONDANSETRON
  4. AMLOD/BENAZP [Concomitant]
  5. ATORVASTATIN [Concomitant]
     Active Substance: ATORVASTATIN
  6. COENZYME Q10 [Concomitant]
     Active Substance: DIETARY SUPPLEMENT\UBIDECARENONE
  7. GABAPENTIN. [Concomitant]
     Active Substance: GABAPENTIN
  8. METRONIDAZOL [Concomitant]
     Active Substance: METRONIDAZOLE
  9. PROCHLORPER [Concomitant]
  10. PROPRANOLOL [Concomitant]
     Active Substance: PROPRANOLOL HYDROCHLORIDE
  11. VITAMIN D2 [Concomitant]
     Active Substance: ERGOCALCIFEROL
  12. CAPECITABINE TAB [Suspect]
     Active Substance: CAPECITABINE
     Indication: COLON CANCER
     Dosage: ?          OTHER FREQUENCY:QAM ? QPM ;?
     Route: 048
     Dates: start: 20210722
  13. FENOFIBRATE. [Concomitant]
     Active Substance: FENOFIBRATE
  14. DICYCLOMINE [Suspect]
     Active Substance: DICYCLOMINE HYDROCHLORIDE
  15. FISH OIL [Concomitant]
     Active Substance: FISH OIL
  16. PROBIOTIC [Concomitant]
     Active Substance: PROBIOTICS NOS
  17. FULPHILA [Concomitant]
     Active Substance: PEGFILGRASTIM-JMDB
  18. HYDROCO/APAP [Concomitant]
     Active Substance: ACETAMINOPHEN\HYDROCODONE
  19. OXALIPLATIN. [Concomitant]
     Active Substance: OXALIPLATIN
  20. RESTASIS MUL EMU [Concomitant]
  21. ALPRAZOLAM. [Concomitant]
     Active Substance: ALPRAZOLAM
  22. DEXAMETH SOD PHOSPHAT [Concomitant]

REACTIONS (2)
  - Rash erythematous [None]
  - Adverse drug reaction [None]

NARRATIVE: CASE EVENT DATE: 20210831
